FAERS Safety Report 24115769 (Version 1)
Quarter: 2024Q3

REPORT INFORMATION
  Report Type: Spontaneous
  Country: TH (occurrence: TH)
  Receive Date: 20240721
  Receipt Date: 20240721
  Transmission Date: 20241017
  Serious: Yes (Other)
  Sender: BAYER
  Company Number: TH-BAYER-2024A097942

PATIENT

DRUGS (2)
  1. FINERENONE [Suspect]
     Active Substance: FINERENONE
     Dosage: 10 MG
  2. FINERENONE [Suspect]
     Active Substance: FINERENONE
     Dosage: 5 MG

REACTIONS (4)
  - Glomerular filtration rate decreased [Recovering/Resolving]
  - Blood creatinine increased [None]
  - Blood pressure decreased [None]
  - Incorrect dose administered [None]
